FAERS Safety Report 7350780-0 (Version None)
Quarter: 2011Q1

REPORT INFORMATION
  Report Type: 
  Country: None (occurrence: None)
  Receive Date: 20110225
  Receipt Date: 20110106
  Transmission Date: 20110831
  Serious: Yes (Hospitalization)
  Sender: FDA-Public Use
  Company Number: AUR-APL-2011-00186

PATIENT
  Age: 65 Year
  Sex: Female
  Weight: 48.3 kg

DRUGS (20)
  1. METHOCARBAMOL [Suspect]
     Indication: MUSCLE RELAXANT THERAPY
     Dosage: 500MG-PRN-ORAL
     Route: 048
     Dates: start: 20090101
  2. RISPERDAL [Suspect]
     Indication: PRODUCT USED FOR UNKNOWN INDICATION
     Dates: start: 20100901, end: 20100914
  3. FOLIC ACID [Concomitant]
  4. METHOTREXATE SODIUM [Suspect]
     Indication: RHEUMATOID ARTHRITIS
     Dosage: 10MG - WEEKLY - ORAL
     Route: 048
     Dates: start: 20100225, end: 20101116
  5. BENZTROPINE MESYLATE [Suspect]
     Indication: AKATHISIA
     Dosage: 1MG-BID-ORAL
     Route: 048
     Dates: start: 20100728
  6. MECLIZINE [Suspect]
     Indication: AKATHISIA
     Dosage: 12.5MG-TID-ORAL
     Route: 048
     Dates: start: 20100809
  7. FERROUS SULFATE TAB [Concomitant]
  8. METHOTREXATE [Suspect]
     Indication: RHEUMATOID ARTHRITIS
     Dosage: 0MG-BID-ORAL
     Route: 048
     Dates: start: 20100225, end: 20101116
  9. OMEPRAZOLE [Concomitant]
  10. LAMOTRIGINE [Suspect]
     Indication: HALLUCINATION
     Dosage: 100MG-DAILY-ORAL
     Route: 048
     Dates: start: 20100901
  11. LORTAB [Suspect]
     Indication: RHEUMATOID ARTHRITIS
     Dosage: 7.5/500MG-UNK-ORAL
     Route: 048
     Dates: start: 20060101
  12. PROMETHAZINE [Concomitant]
  13. PREDNISONE [Concomitant]
  14. ALBUTEROL [Concomitant]
  15. LORAZEPAM [Suspect]
     Indication: ANXIETY
     Dosage: 0.25MG-TID-ORAL
     Route: 048
     Dates: start: 20100630, end: 20100901
  16. SEROQUEL [Suspect]
     Indication: ANXIETY
     Dosage: 300MG-BID-ORAL
     Route: 048
     Dates: start: 20060101
  17. CARISOPRODOL [Suspect]
     Indication: ANXIETY
     Dosage: 175MG-TID-ORAL
     Route: 048
     Dates: start: 20100901
  18. CYMBALTA [Suspect]
     Indication: ANXIETY
     Dosage: 60MG-DAILY-ORAL
     Route: 048
     Dates: start: 20100901
  19. LYRICA [Concomitant]
  20. EFFEXOR XR [Suspect]
     Indication: HOT FLUSH
     Dosage: 150MG-DAILY-ORAL
     Route: 048
     Dates: start: 20080101

REACTIONS (1)
  - PSYCHOTIC DISORDER [None]
